FAERS Safety Report 5934313-9 (Version None)
Quarter: 2008Q4

REPORT INFORMATION
  Report Type: 
  Country: None (occurrence: None)
  Receive Date: 20081029
  Receipt Date: 20081020
  Transmission Date: 20090506
  Serious: Yes (Other)
  Sender: FDA-Public Use
  Company Number: PHEH2008US08210

PATIENT
  Sex: Female

DRUGS (1)
  1. GENTEAL GEL (NVO) [Suspect]
     Indication: DRY EYE
     Dosage: UNK, PRN
     Dates: start: 20080304, end: 20080923

REACTIONS (5)
  - CONJUNCTIVITIS ALLERGIC [None]
  - DRUG INEFFECTIVE [None]
  - EYE IRRITATION [None]
  - GLAUCOMA [None]
  - VISION BLURRED [None]
